FAERS Safety Report 16667472 (Version 3)
Quarter: 2019Q3

REPORT INFORMATION
  Report Type: Spontaneous
  Country: IT (occurrence: IT)
  Receive Date: 20190805
  Receipt Date: 20190905
  Transmission Date: 20191004
  Serious: Yes (Other)
  Sender: FDA-Public Use
  Company Number: IT-PFIZER INC-2019330054

PATIENT
  Age: 4 Year
  Sex: Male
  Weight: 18 kg

DRUGS (4)
  1. FRISIUM [Concomitant]
     Active Substance: CLOBAZAM
     Indication: EPILEPTIC ENCEPHALOPATHY
     Dosage: 10 MG, DAILY
     Route: 048
  2. DEPAKIN [Suspect]
     Active Substance: VALPROATE SODIUM
     Indication: EPILEPTIC ENCEPHALOPATHY
     Dosage: 1 DF, DAILY
     Route: 048
     Dates: start: 20190101, end: 20190713
  3. DIACOMIT [Concomitant]
     Active Substance: STIRIPENTOL
     Indication: EPILEPTIC ENCEPHALOPATHY
     Dosage: 1 DF, DAILY
  4. ZARONTIN [Suspect]
     Active Substance: ETHOSUXIMIDE
     Indication: EPILEPTIC ENCEPHALOPATHY
     Dosage: 1 DF, DAILY
     Route: 048
     Dates: start: 20190101, end: 20190713

REACTIONS (2)
  - Asthenia [Recovering/Resolving]
  - Overdose [Recovering/Resolving]

NARRATIVE: CASE EVENT DATE: 20190713
